FAERS Safety Report 8577977 (Version 27)
Quarter: 2016Q2

REPORT INFORMATION
  Report Type: Report from Study
  Country: CA (occurrence: CA)
  Receive Date: 20120524
  Receipt Date: 20160624
  Transmission Date: 20160815
  Serious: Yes (Hospitalization, Other)
  Sender: FDA-Public Use
  Company Number: PHHY2012CA042928

PATIENT
  Age: 58 Year
  Sex: Female

DRUGS (2)
  1. SANDOSTATIN LAR DEPOT [Suspect]
     Active Substance: OCTREOTIDE ACETATE
     Indication: PANCREATIC NEUROENDOCRINE TUMOUR METASTATIC
     Dosage: 20 MG, QMO (EVERY 4 WEEKS)
     Route: 030
     Dates: start: 20090811
  2. AFINITOR [Suspect]
     Active Substance: EVEROLIMUS
     Indication: PANCREATIC NEUROENDOCRINE TUMOUR METASTATIC
     Dosage: 10 MG, QD
     Route: 048
     Dates: start: 20100930

REACTIONS (47)
  - Infection [Unknown]
  - Hepatomegaly [Unknown]
  - Urinary incontinence [Unknown]
  - Glucose urine present [Unknown]
  - Incoherent [Unknown]
  - Urinary tract infection [Unknown]
  - Alopecia [Unknown]
  - Abdominal tenderness [Unknown]
  - Injection site erythema [Recovered/Resolved]
  - Pneumonia bacterial [Unknown]
  - Blood phosphorus decreased [Unknown]
  - Gastrooesophageal reflux disease [Unknown]
  - Blood pressure increased [Unknown]
  - Weight decreased [Unknown]
  - Needle issue [Unknown]
  - Abdominal distension [Unknown]
  - Rotator cuff syndrome [Unknown]
  - Pollakiuria [Unknown]
  - Breath odour [Unknown]
  - Dysarthria [Unknown]
  - Nasopharyngitis [Recovering/Resolving]
  - Influenza [Unknown]
  - Blood glucose increased [Unknown]
  - Abdominal pain [Not Recovered/Not Resolved]
  - Functional gastrointestinal disorder [Recovered/Resolved]
  - Epigastric discomfort [Unknown]
  - Sinus congestion [Recovering/Resolving]
  - Injection site reaction [Recovered/Resolved]
  - Abdominal rigidity [Unknown]
  - Hypothyroidism [Unknown]
  - Malaise [Unknown]
  - Musculoskeletal pain [Not Recovered/Not Resolved]
  - Fall [Unknown]
  - Gastrointestinal sounds abnormal [Unknown]
  - Dehydration [Recovering/Resolving]
  - Flatulence [Recovering/Resolving]
  - Rash macular [Unknown]
  - Blood sodium decreased [Recovering/Resolving]
  - Abdominal discomfort [Unknown]
  - Constipation [Unknown]
  - Pyrexia [Unknown]
  - Bronchitis [Recovered/Resolved]
  - Type 1 diabetes mellitus [Unknown]
  - Malignant neoplasm progression [Unknown]
  - Memory impairment [Unknown]
  - Rhinorrhoea [Recovering/Resolving]
  - Fatigue [Unknown]

NARRATIVE: CASE EVENT DATE: 20120423
